FAERS Safety Report 7657070-7 (Version None)
Quarter: 2011Q3

REPORT INFORMATION
  Report Type: 
  Country: None (occurrence: None)
  Receive Date: 20110804
  Receipt Date: 20100629
  Transmission Date: 20111222
  Serious: No
  Sender: FDA-Public Use
  Company Number: US-GLAXOSMITHKLINE-A0867666A

PATIENT
  Age: 73 Year
  Sex: Female

DRUGS (6)
  1. ADVAIR DISKUS 100/50 [Suspect]
     Indication: CHRONIC OBSTRUCTIVE PULMONARY DISEASE
     Dosage: 2PUFF TWICE PER DAY
     Route: 055
     Dates: start: 20100301
  2. LEVOTHYROXINE SODIUM [Concomitant]
  3. LOTREL [Concomitant]
  4. OXYGEN [Concomitant]
  5. SPIRONOLACTONE [Concomitant]
  6. OMEPRAZOLE [Concomitant]

REACTIONS (2)
  - CANDIDIASIS [None]
  - OESOPHAGITIS [None]
